FAERS Safety Report 13306287 (Version 1)
Quarter: 2017Q1

REPORT INFORMATION
  Report Type: Spontaneous
  Country: BR (occurrence: BR)
  Receive Date: 20170308
  Receipt Date: 20170308
  Transmission Date: 20170428
  Serious: Yes (Other)
  Sender: FDA-Public Use
  Company Number: PHHY2017BR030188

PATIENT
  Sex: Female
  Weight: 58 kg

DRUGS (1)
  1. DIOVAN HCT [Suspect]
     Active Substance: HYDROCHLOROTHIAZIDE\VALSARTAN
     Indication: HYPERTENSION
     Dosage: 1 DF (IN THE MORNING), QD
     Route: 048
     Dates: end: 20170217

REACTIONS (2)
  - Breast cancer [Recovering/Resolving]
  - Blood pressure increased [Recovering/Resolving]
